FAERS Safety Report 5471340-2 (Version None)
Quarter: 2007Q3

REPORT INFORMATION
  Report Type: 
  Country: None (occurrence: None)
  Receive Date: 20070928
  Receipt Date: 20060818
  Transmission Date: 20080115
  Serious: No
  Sender: FDA-Public Use
  Company Number: US-BRISTOL-MYERS SQUIBB COMPANY-13482179

PATIENT
  Sex: Male
  Weight: 195 kg

DRUGS (1)
  1. DEFINITY [Suspect]
     Indication: ECHOCARDIOGRAM
     Dosage: DOSAGE: THE PATIENT RECEIVED 3.5 CC OF THE 7CC(ML) OF DILUTED PRODUCT THAT WAS TO BE ADMINISTERED.
     Route: 042
     Dates: start: 20060817

REACTIONS (2)
  - BACK PAIN [None]
  - PAIN IN EXTREMITY [None]
